FAERS Safety Report 25614456 (Version 3)
Quarter: 2025Q3

REPORT INFORMATION
  Report Type: Spontaneous
  Country: JO (occurrence: JO)
  Receive Date: 20250729
  Receipt Date: 20250815
  Transmission Date: 20251021
  Serious: Yes (Hospitalization, Other)
  Sender: NOVO NORDISK
  Company Number: JO-NOVOPROD-1481537

PATIENT
  Age: 36 Year
  Sex: Female

DRUGS (3)
  1. OZEMPIC [Suspect]
     Active Substance: SEMAGLUTIDE
     Indication: Weight control
     Dates: start: 20250209
  2. OZEMPIC [Suspect]
     Active Substance: SEMAGLUTIDE
     Dates: end: 202506
  3. OZEMPIC [Suspect]
     Active Substance: SEMAGLUTIDE
     Indication: Insulin resistance

REACTIONS (8)
  - Urinary tract infection [Recovered/Resolved]
  - Abdominal distension [Recovered/Resolved]
  - Flank pain [Recovered/Resolved]
  - Urinary tract injury [Recovered/Resolved]
  - Urinary tract inflammation [Recovered/Resolved]
  - Crystal urine present [Recovered/Resolved]
  - Blood urine present [Recovered/Resolved]
  - Off label use [Unknown]

NARRATIVE: CASE EVENT DATE: 20250209
